FAERS Safety Report 7866966-2 (Version None)
Quarter: 2011Q4

REPORT INFORMATION
  Report Type: 
  Country: None (occurrence: None)
  Receive Date: 20111028
  Receipt Date: 20111024
  Transmission Date: 20120403
  Serious: Yes (Other)
  Sender: FDA-Public Use
  Company Number: US-PERRIGO-11US008612

PATIENT
  Sex: Female
  Weight: 56.689 kg

DRUGS (1)
  1. IBUPROFEN [Suspect]
     Indication: HEADACHE
     Dosage: 600 MG, SINGLE
     Route: 048
     Dates: start: 20110901, end: 20110901

REACTIONS (3)
  - SWELLING FACE [None]
  - PHARYNGEAL OEDEMA [None]
  - INCORRECT DOSE ADMINISTERED [None]
